FAERS Safety Report 8845181 (Version 1)
Quarter: 2012Q4

REPORT INFORMATION
  Report Type: Spontaneous
  Country: US (occurrence: None)
  Receive Date: 20121016
  Receipt Date: 20121016
  Transmission Date: 20130627
  Serious: Yes (Hospitalization)
  Sender: FDA-Public Use
  Company Number: None

PATIENT
  Age: 35 Year
  Sex: Female
  Weight: 46.3 kg

DRUGS (4)
  1. RITUXIMAB [Suspect]
     Indication: DESENSITISATION INJECTION
     Route: 042
     Dates: start: 20110614
  2. IVIG 100 GM [Concomitant]
  3. TACROLIMUS [Concomitant]
  4. CELLCEPT [Concomitant]

REACTIONS (2)
  - Abscess limb [None]
  - Post procedural cellulitis [None]
